FAERS Safety Report 7374646-5 (Version None)
Quarter: 2011Q1

REPORT INFORMATION
  Report Type: 
  Country: None (occurrence: None)
  Receive Date: 20110325
  Receipt Date: 20100609
  Transmission Date: 20110831
  Serious: No
  Sender: FDA-Public Use
  Company Number: US-MYLANLABS-2010S1010382

PATIENT
  Age: 68 Year
  Sex: Male

DRUGS (14)
  1. FENTANYL-100 [Suspect]
     Dosage: CHANGED Q72H
     Route: 062
  2. FUROSEMIDE [Concomitant]
     Route: 048
  3. LIPITOR [Concomitant]
     Route: 048
  4. FLOMAX /01280302/ [Concomitant]
     Route: 048
  5. CLONAZEPAM [Concomitant]
     Route: 048
  6. BACLOFEN [Concomitant]
     Dosage: AS NEEDED
     Route: 048
  7. MIRAPEX [Concomitant]
     Route: 048
  8. FENTANYL-100 [Suspect]
     Indication: PAIN
     Dosage: CHANGED Q72H
     Route: 048
  9. CYMBALTA [Concomitant]
     Route: 048
  10. ISOSORBIDE DINITRATE [Concomitant]
     Route: 048
  11. GABAPENTIN [Concomitant]
     Route: 048
  12. GLIPIZIDE [Concomitant]
     Route: 048
  13. METOPROLOL SUCCINATE [Concomitant]
     Route: 048
  14. DOXICYCLINE /00055701/ [Concomitant]
     Route: 048

REACTIONS (3)
  - DRUG EFFECT INCREASED [None]
  - DIZZINESS [None]
  - APPLICATION SITE PAIN [None]
